FAERS Safety Report 21594582 (Version 1)
Quarter: 2022Q4

REPORT INFORMATION
  Report Type: Spontaneous
  Country: US (occurrence: None)
  Receive Date: 20221115
  Receipt Date: 20221115
  Transmission Date: 20230113
  Serious: Yes (Other)
  Sender: FDA-Public Use
  Company Number: US-ROCHE-3217800

PATIENT
  Sex: Female

DRUGS (2)
  1. NUTROPIN [Suspect]
     Active Substance: SOMATROPIN
     Indication: End stage renal disease
     Dosage: ONGOING: YES, DAILY, UNDER THE SKIN
     Route: 065
     Dates: start: 20211119
  2. NUTROPIN [Suspect]
     Active Substance: SOMATROPIN

REACTIONS (1)
  - Fungal peritonitis [Recovered/Resolved]

NARRATIVE: CASE EVENT DATE: 20220730
